FAERS Safety Report 13829016 (Version 1)
Quarter: 2017Q3

REPORT INFORMATION
  Report Type: Not Available
  Country: US (occurrence: US)
  Receive Date: 20170803
  Receipt Date: 20170803
  Transmission Date: 20171127
  Serious: Yes (Death)
  Sender: FDA-Public Use
  Company Number: None

PATIENT
  Age: 8 Year
  Sex: Male
  Weight: 24.4 kg

DRUGS (3)
  1. MELPHALAN. [Suspect]
     Active Substance: MELPHALAN
     Route: 042
     Dates: start: 20170620
  2. BUSULFAN. [Suspect]
     Active Substance: BUSULFAN
     Indication: NEUROBLASTOMA
     Route: 042
     Dates: start: 20170615, end: 20170618
  3. G-CSF [Concomitant]
     Active Substance: GRANULOCYTE COLONY-STIMULATING FACTOR NOS

REACTIONS (14)
  - Hypotension [None]
  - Bradycardia [None]
  - Vomiting [None]
  - Hypophagia [None]
  - Cardio-respiratory arrest [None]
  - Neutropenia [None]
  - Abdominal pain [None]
  - Dehydration [None]
  - Urine output decreased [None]
  - Multiple organ dysfunction syndrome [None]
  - Septic shock [None]
  - Toxicity to various agents [None]
  - Pyrexia [None]
  - Stem cell transplant [None]

NARRATIVE: CASE EVENT DATE: 20170718
